FAERS Safety Report 17206191 (Version 2)
Quarter: 2020Q3

REPORT INFORMATION
  Report Type: Spontaneous
  Country: JP (occurrence: JP)
  Receive Date: 20191227
  Receipt Date: 20200101
  Transmission Date: 20201104
  Serious: Yes (Other)
  Sender: FDA-Public Use
  Company Number: JP-ABBVIE-19P-087-3212015-00

PATIENT
  Age: 38 Year
  Sex: Female
  Weight: 60 kg

DRUGS (6)
  1. RELUGOLIX. [Suspect]
     Active Substance: RELUGOLIX
     Indication: IRON DEFICIENCY ANAEMIA
     Route: 048
  2. FESIN [SACCHARATED IRON OXIDE] [Concomitant]
     Active Substance: IRON SUCROSE
     Indication: IRON DEFICIENCY ANAEMIA
     Dosage: 80 MILLIGRAM, 2/WEEK
     Route: 042
     Dates: start: 20190624, end: 20190705
  3. LEUPLIN [Suspect]
     Active Substance: LEUPROLIDE ACETATE
     Indication: PRODUCT USED FOR UNKNOWN INDICATION
     Route: 050
  4. FESIN [SACCHARATED IRON OXIDE] [Concomitant]
     Active Substance: IRON SUCROSE
     Dosage: 80 MILLIGRAM, 1/WEEK
     Route: 042
     Dates: start: 20190712, end: 20190719
  5. RELUGOLIX. [Suspect]
     Active Substance: RELUGOLIX
     Indication: UTERINE LEIOMYOMA
     Dosage: 40 MILLIGRAM, QD
     Route: 048
     Dates: start: 20190710, end: 20191006
  6. FERROMIA [Concomitant]
     Active Substance: SODIUM FERROUS CITRATE
     Indication: IRON DEFICIENCY ANAEMIA
     Dosage: 1 DOSAGE FORM, BID
     Route: 048
     Dates: start: 20190805, end: 20190902

REACTIONS (2)
  - Hypertension [Recovering/Resolving]
  - Myomectomy [Unknown]

NARRATIVE: CASE EVENT DATE: 201612
